FAERS Safety Report 9344530 (Version 1)
Quarter: 2013Q2

REPORT INFORMATION
  Report Type: Spontaneous
  Country: US (occurrence: US)
  Receive Date: 20130612
  Receipt Date: 20130612
  Transmission Date: 20140414
  Serious: Yes (Hospitalization)
  Sender: FDA-Public Use
  Company Number: US-ELI_LILLY_AND_COMPANY-US201306000823

PATIENT
  Sex: Female

DRUGS (3)
  1. FORTEO [Suspect]
     Indication: SPINAL FRACTURE
     Dosage: 20 UG, QD
     Dates: start: 201109, end: 201303
  2. LEVALBUTEROL [Concomitant]
     Dosage: UNK, BID
  3. BROVANA [Concomitant]
     Dosage: UNK, BID

REACTIONS (2)
  - Bladder cancer [Unknown]
  - Intestinal obstruction [Unknown]
